FAERS Safety Report 4699700-8 (Version None)
Quarter: 2005Q2

REPORT INFORMATION
  Report Type: 
  Country: None (occurrence: None)
  Receive Date: 20050623
  Receipt Date: 20050608
  Transmission Date: 20051028
  Serious: No
  Sender: FDA-Public Use
  Company Number: 2005FR-00005

PATIENT
  Age: 74 Year
  Sex: Female
  Weight: 83 kg

DRUGS (7)
  1. ASPIRIN [Suspect]
     Indication: AORTIC DISSECTION
     Dosage: 75 MG, ORAL
  2. ASPIRIN [Suspect]
     Indication: HYPERTENSION
     Dosage: 75 MG, ORAL
  3. VALARTAN  160 MG [Concomitant]
  4. DOXAZOSIN 16 MG [Concomitant]
  5. FELODIPINE [Concomitant]
  6. EPANUTIN 100MG [Concomitant]
  7. CHLORPHENIRAMINE MALEATE [Concomitant]

REACTIONS (1)
  - ANGIONEUROTIC OEDEMA [None]
